FAERS Safety Report 22616765 (Version 3)
Quarter: 2024Q1

REPORT INFORMATION
  Report Type: Report from Study
  Country: JP (occurrence: JP)
  Receive Date: 20230619
  Receipt Date: 20240313
  Transmission Date: 20240410
  Serious: Yes (Death)
  Sender: FDA-Public Use
  Company Number: JP-BAUSCH-BL-2023-009408

PATIENT
  Age: 76 Year
  Sex: Male

DRUGS (1)
  1. TETRABENAZINE [Suspect]
     Active Substance: TETRABENAZINE
     Indication: Huntington^s disease
     Dosage: 6 TABLETS/DAY (THREE TIMES A DAY)
     Route: 048
     Dates: start: 20161201

REACTIONS (2)
  - COVID-19 [Fatal]
  - Respiratory failure [Fatal]

NARRATIVE: CASE EVENT DATE: 20220101
